FAERS Safety Report 4736262-0 (Version None)
Quarter: 2005Q3

REPORT INFORMATION
  Report Type: 
  Country: None (occurrence: None)
  Receive Date: 20050805
  Receipt Date: 20050805
  Transmission Date: 20060218
  Serious: Yes (Hospitalization)
  Sender: FDA-Public Use
  Company Number: None

PATIENT
  Sex: Male
  Weight: 85.7298 kg

DRUGS (4)
  1. ZETIA [Suspect]
     Indication: HYPERCHOLESTEROLAEMIA
     Dosage: 10 MG DAILY ORAL
     Route: 048
     Dates: start: 20050208, end: 20050727
  2. CRESTOR [Suspect]
     Indication: HYPERCHOLESTEROLAEMIA
     Dosage: 10 MG DAILY ORAL
     Route: 048
     Dates: start: 20050208, end: 20050708
  3. WARFARIN [Concomitant]
  4. METOPROLOL [Concomitant]

REACTIONS (1)
  - RHABDOMYOLYSIS [None]
